FAERS Safety Report 5042445-5 (Version None)
Quarter: 2006Q2

REPORT INFORMATION
  Report Type: 
  Country: None (occurrence: None)
  Receive Date: 20060627
  Receipt Date: 20060615
  Transmission Date: 20061013
  Serious: Yes (Hospitalization)
  Sender: FDA-Public Use
  Company Number: 2006-143923-NL

PATIENT
  Age: 35 Year
  Sex: Female

DRUGS (3)
  1. FOLLITROPIN BETA [Suspect]
     Indication: OVULATION INDUCTION
  2. FOLLITROPIN BETA [Suspect]
     Indication: OVULATION INDUCTION
  3. FOLLITROPIN BETA [Suspect]
     Indication: OVULATION INDUCTION

REACTIONS (1)
  - BRAIN STEM INFARCTION [None]
